FAERS Safety Report 9767682 (Version 1)
Quarter: 2013Q4

REPORT INFORMATION
  Report Type: Spontaneous
  Country: US (occurrence: None)
  Receive Date: 20131213
  Receipt Date: 20131213
  Transmission Date: 20140711
  Serious: Yes (Other)
  Sender: FDA-Public Use
  Company Number: 2013SA026862

PATIENT
  Age: 53 Year
  Sex: Male

DRUGS (2)
  1. CAPSAICIN [Suspect]
     Indication: MUSCULOSKELETAL PAIN
     Route: 061
  2. CAPSAICIN [Suspect]
     Indication: ARTHRITIS
     Route: 061

REACTIONS (4)
  - Blister [None]
  - Pain of skin [None]
  - Erythema [None]
  - Feeling hot [None]
